FAERS Safety Report 9745378 (Version 2)
Quarter: 2013Q4

REPORT INFORMATION
  Report Type: Report from Study
  Country: FR (occurrence: FR)
  Receive Date: 20131211
  Receipt Date: 20131212
  Transmission Date: 20140711
  Serious: Yes (Hospitalization)
  Sender: FDA-Public Use
  Company Number: PHHO2013FR015891

PATIENT
  Sex: 0

DRUGS (4)
  1. STI571 [Suspect]
     Indication: CHRONIC MYELOID LEUKAEMIA
     Dosage: 400 MG, UNK
     Route: 048
     Dates: start: 20130205
  2. IBUPROFEN [Concomitant]
     Indication: HEADACHE
     Dosage: ON DEMAND
     Dates: start: 200908
  3. ZOLPIDEM [Concomitant]
     Indication: INSOMNIA
     Dosage: 10 MG, UNK
     Route: 048
     Dates: start: 20130828
  4. EFFEXOR [Concomitant]
     Indication: MOOD ALTERED
     Dosage: 37.5 MG, UNK
     Route: 048
     Dates: start: 20091216

REACTIONS (1)
  - Nephrolithiasis [Recovered/Resolved]
